FAERS Safety Report 7097714-4 (Version None)
Quarter: 2010Q4

REPORT INFORMATION
  Report Type: 
  Country: None (occurrence: None)
  Receive Date: 20101112
  Receipt Date: 20101103
  Transmission Date: 20110411
  Serious: No
  Sender: FDA-Public Use
  Company Number: US-BIOGENIDEC-2010BI039107

PATIENT
  Sex: Male

DRUGS (1)
  1. AVONEX [Suspect]
     Indication: MULTIPLE SCLEROSIS
     Route: 030
     Dates: start: 20100701, end: 20100908

REACTIONS (8)
  - CENTRAL NERVOUS SYSTEM LESION [None]
  - DRUG ABUSE [None]
  - DYSKINESIA [None]
  - DYSSTASIA [None]
  - HEAD TITUBATION [None]
  - MOBILITY DECREASED [None]
  - OBSESSIVE-COMPULSIVE DISORDER [None]
  - TREMOR [None]
